FAERS Safety Report 9547437 (Version 1)
Quarter: 2013Q2

REPORT INFORMATION
  Report Type: Spontaneous
  Country: US (occurrence: None)
  Receive Date: 20130606
  Receipt Date: 20130606
  Transmission Date: 20140414
  Serious: Yes (Other)
  Sender: FDA-Public Use
  Company Number: 163-POMAL-13044059

PATIENT
  Age: 84 Year
  Sex: Male
  Weight: 54.89 kg

DRUGS (3)
  1. POMALYST [Suspect]
     Indication: PLASMA CELL MYELOMA
     Dosage: 2 MG, 21 IN 28 D, PO
     Route: 048
     Dates: start: 20130327, end: 20130411
  2. DEXAMETHASONE [Concomitant]
  3. VITAMINS [Concomitant]

REACTIONS (3)
  - White blood cell count decreased [None]
  - Platelet count decreased [None]
  - Dyspnoea [None]
